FAERS Safety Report 16530678 (Version 1)
Quarter: 2019Q3

REPORT INFORMATION
  Report Type: Spontaneous
  Country: DE (occurrence: DE)
  Receive Date: 20190704
  Receipt Date: 20190704
  Transmission Date: 20191004
  Serious: Yes (Hospitalization, Other)
  Sender: FDA-Public Use
  Company Number: DE-TAKEDA-2019TUS040555

PATIENT
  Age: 58 Year
  Sex: Male

DRUGS (12)
  1. DEKRISTOL [Concomitant]
     Active Substance: CHOLECALCIFEROL
     Dosage: UNK
  2. TRAMADOL. [Concomitant]
     Active Substance: TRAMADOL
     Dosage: 300 MILLIGRAM
  3. RAMILICH [Concomitant]
     Active Substance: RAMIPRIL
     Dosage: 5 MILLIGRAM
  4. IBUPROFEN. [Concomitant]
     Active Substance: IBUPROFEN
     Dosage: 1600 MILLIGRAM
  5. ENTYVIO [Suspect]
     Active Substance: VEDOLIZUMAB
     Indication: PRODUCT USED FOR UNKNOWN INDICATION
     Dosage: UNK
     Route: 065
  6. HUMIRA [Suspect]
     Active Substance: ADALIMUMAB
     Indication: CROHN^S DISEASE
     Route: 058
     Dates: start: 2015, end: 201902
  7. OMEPRAZOL                          /00661201/ [Concomitant]
     Active Substance: OMEPRAZOLE
     Dosage: 20 MILLIGRAM
  8. SALOFALK                           /00000301/ [Concomitant]
     Active Substance: AMINOSALICYLIC ACID
     Dosage: UNK
  9. ADALIMUMAB [Concomitant]
     Active Substance: ADALIMUMAB
     Indication: CROHN^S DISEASE
     Dosage: 40 MILLIGRAM
     Dates: start: 2015, end: 201902
  10. RAMIPRIL COMP [Concomitant]
     Active Substance: HYDROCHLOROTHIAZIDE\RAMIPRIL
     Dosage: 5 MILLIGRAM
  11. KALINOR RETARD P [Concomitant]
     Active Substance: POTASSIUM CHLORIDE
     Dosage: 1800 MILLIEQUIVALENT
  12. NOVAMINSULFON [Concomitant]
     Active Substance: METAMIZOLE
     Dosage: 500 MILLIGRAM

REACTIONS (8)
  - Cerebrovascular accident [Not Recovered/Not Resolved]
  - Liver function test increased [Unknown]
  - Amnesia [Unknown]
  - Disorientation [Unknown]
  - Epilepsy [Unknown]
  - Therapeutic product effect decreased [Unknown]
  - Neoplasm [Not Recovered/Not Resolved]
  - C-reactive protein increased [Unknown]

NARRATIVE: CASE EVENT DATE: 2019
